FAERS Safety Report 7264577-3 (Version None)
Quarter: 2011Q1

REPORT INFORMATION
  Report Type: 
  Country: None (occurrence: None)
  Receive Date: 20110131
  Receipt Date: 20110121
  Transmission Date: 20110831
  Serious: No
  Sender: FDA-Public Use
  Company Number: US-PFIZER INC-2011016340

PATIENT
  Sex: Female

DRUGS (2)
  1. EFFEXOR XR [Suspect]
     Dosage: 150 MG, 2X/DAY
  2. EFFEXOR XR [Suspect]
     Dosage: 150 MG

REACTIONS (2)
  - WEIGHT INCREASED [None]
  - INCREASED APPETITE [None]
